FAERS Safety Report 21700611 (Version 1)
Quarter: 2022Q4

REPORT INFORMATION
  Report Type: Spontaneous
  Country: US (occurrence: None)
  Receive Date: 20221207
  Receipt Date: 20221207
  Transmission Date: 20230112
  Serious: No
  Sender: FDA-Public Use
  Company Number: None

PATIENT
  Age: 70 Year
  Sex: Male
  Weight: 91 kg

DRUGS (1)
  1. NICOTINE [Suspect]
     Active Substance: NICOTINE
     Indication: Tobacco abuse
     Dosage: 21 MG EVERY DAY TOP
     Route: 061
     Dates: start: 20220922, end: 20220922

REACTIONS (1)
  - Hypotension [None]

NARRATIVE: CASE EVENT DATE: 20220922
